FAERS Safety Report 5710386-3 (Version None)
Quarter: 2008Q2

REPORT INFORMATION
  Report Type: 
  Country: None (occurrence: None)
  Receive Date: 20080418
  Receipt Date: 20080414
  Transmission Date: 20081010
  Serious: Yes (Hospitalization, Other)
  Sender: FDA-Public Use
  Company Number: US-MERCK-0803USA00999

PATIENT
  Age: 79 Year
  Sex: Male

DRUGS (1)
  1. VYTORIN [Suspect]
     Indication: LIPIDS INCREASED
     Route: 048

REACTIONS (3)
  - DIZZINESS [None]
  - RENAL IMPAIRMENT [None]
  - RHABDOMYOLYSIS [None]
